FAERS Safety Report 8572114-6 (Version None)
Quarter: 2012Q3

REPORT INFORMATION
  Report Type: 
  Country: None (occurrence: None)
  Receive Date: 20120724
  Receipt Date: 20120710
  Transmission Date: 20120928
  Serious: Yes (Other)
  Sender: FDA-Public Use
  Company Number: TPA2012A04426

PATIENT
  Age: 72 Year
  Sex: Male

DRUGS (1)
  1. ADENURIC (FEBUXOSTAT) [Suspect]
     Indication: HYPERURICAEMIA
     Dosage: 80 MG (80 MG,1 IN 1 D) ORAL
     Route: 048
     Dates: start: 20120201, end: 20120525

REACTIONS (2)
  - SKIN DISORDER [None]
  - SKIN ULCER [None]
